FAERS Safety Report 8785961 (Version 2)
Quarter: 2012Q4

REPORT INFORMATION
  Report Type: 
  Country: US (occurrence: US)
  Receive Date: 20120914
  Receipt Date: 20121016
  Transmission Date: 20130627
  Serious: Yes (Death)
  Sender: FDA-Public Use
  Company Number: US-ROCHE-1127715

PATIENT
  Sex: Male

DRUGS (2)
  1. AVASTIN [Suspect]
     Indication: OESOPHAGEAL CANCER METASTATIC
     Route: 042
     Dates: start: 20060607, end: 20061130
  2. TAXOTERE [Concomitant]

REACTIONS (1)
  - Disease progression [Fatal]
